FAERS Safety Report 20568075 (Version 1)
Quarter: 2022Q1

REPORT INFORMATION
  Report Type: Spontaneous
  Country: CN (occurrence: CN)
  Receive Date: 20220308
  Receipt Date: 20220308
  Transmission Date: 20220423
  Serious: Yes (Hospitalization, Other)
  Sender: FDA-Public Use
  Company Number: CN-PFIZER INC-202200327744

PATIENT
  Age: 17 Year
  Sex: Female

DRUGS (4)
  1. LINEZOLID [Suspect]
     Active Substance: LINEZOLID
     Indication: Pulmonary tuberculosis
     Dosage: 0.6 G, ONCE A DAY
     Route: 048
     Dates: start: 20210418, end: 20220118
  2. MOXIFLOXACIN HYDROCHLORIDE [Suspect]
     Active Substance: MOXIFLOXACIN HYDROCHLORIDE
     Indication: Pulmonary tuberculosis
     Dosage: 0.4 G, ONCE A DAY
     Route: 048
     Dates: start: 20210418, end: 20220118
  3. CLOFAZIMINE [Concomitant]
     Active Substance: CLOFAZIMINE
     Indication: Pulmonary tuberculosis
     Dosage: 0.1 G, ONCE A DAY
     Route: 048
     Dates: start: 20210418, end: 20220118
  4. CYCLOSERINE [Concomitant]
     Active Substance: CYCLOSERINE
     Indication: Pulmonary tuberculosis
     Dosage: 0.25 G, TWICE A DAY
     Route: 048
     Dates: start: 20210418, end: 20220118

REACTIONS (3)
  - Drug-induced liver injury [Unknown]
  - Gastritis [Unknown]
  - Off label use [Unknown]

NARRATIVE: CASE EVENT DATE: 20210418
